FAERS Safety Report 8570206-9 (Version None)
Quarter: 2012Q3

REPORT INFORMATION
  Report Type: 
  Country: None (occurrence: None)
  Receive Date: 20120803
  Receipt Date: 20120731
  Transmission Date: 20120928
  Serious: Yes (Death, Other)
  Sender: FDA-Public Use
  Company Number: PHHY2012JP061539

PATIENT
  Age: 43 Year
  Sex: Female

DRUGS (10)
  1. AMPHOTERICIN B [Concomitant]
  2. ACYCLOVIR [Concomitant]
  3. SULFAMETHOXAZOLE AND TRIMETHOPRIM [Concomitant]
  4. CYCLOSPORINE [Suspect]
     Indication: PROPHYLAXIS AGAINST GRAFT VERSUS HOST DISEASE
     Route: 048
  5. THIOTEPA [Concomitant]
     Indication: BONE MARROW CONDITIONING REGIMEN
  6. IMMUNE GLOBULIN NOS [Concomitant]
     Route: 042
  7. CYCLOSPORINE [Suspect]
     Indication: STEM CELL TRANSPLANT
  8. CYCLOPHOSPHAMIDE [Concomitant]
     Indication: BONE MARROW CONDITIONING REGIMEN
  9. ANTIBIOTICS [Concomitant]
  10. METHOTREXATE [Suspect]

REACTIONS (2)
  - PNEUMOCYSTIS JIROVECI PNEUMONIA [None]
  - CHRONIC GRAFT VERSUS HOST DISEASE [None]
